FAERS Safety Report 9330146 (Version 3)
Quarter: 2013Q3

REPORT INFORMATION
  Report Type: Report from Study
  Country: CI (occurrence: CI)
  Receive Date: 20130604
  Receipt Date: 20130718
  Transmission Date: 20140515
  Serious: Yes (Other)
  Sender: FDA-Public Use
  Company Number: CI-GILEAD-2012-0064378

PATIENT
  Age: 42 Year
  Sex: Female

DRUGS (8)
  1. EMTRICITABINE/TENOFOVIR DISOPROXIL FUMARATE [Suspect]
     Indication: HIV INFECTION
     Dosage: 500 MG, QD
     Route: 048
     Dates: start: 20121130
  2. EFAVIRENZ [Suspect]
     Indication: HIV INFECTION
     Dosage: 600 MG, QD
     Route: 048
     Dates: start: 20130517
  3. LOPINAVIR [Suspect]
     Indication: HIV INFECTION
     Dosage: 400 MG, QD
     Route: 048
     Dates: start: 20121130, end: 20130107
  4. RITONAVIR [Suspect]
     Indication: HIV INFECTION
     Dosage: 200 MG, QD
     Route: 048
     Dates: start: 20121130, end: 20130107
  5. ATAZANAVIR [Suspect]
     Indication: HIV INFECTION
     Dosage: 300 MG, QD
     Route: 048
     Dates: start: 20130107, end: 20130517
  6. CO-TRIMOXAZOLE [Suspect]
     Indication: OPPORTUNISTIC INFECTION PROPHYLAXIS
     Dosage: 1 DF, QD
     Route: 048
     Dates: start: 20120229, end: 20121031
  7. QUININE [Concomitant]
     Indication: MALARIA
     Dosage: 300 MG, TID
     Route: 048
     Dates: start: 20120829, end: 20121204
  8. PARACETAMOL [Concomitant]
     Indication: ANTIPYRESIS
     Dosage: 1 G, BID
     Route: 048
     Dates: start: 20120829, end: 20121204

REACTIONS (1)
  - Stillbirth [Recovered/Resolved]
